FAERS Safety Report 22141699 (Version 2)
Quarter: 2023Q2

REPORT INFORMATION
  Report Type: Spontaneous
  Country: US (occurrence: US)
  Receive Date: 20230327
  Receipt Date: 20230406
  Transmission Date: 20230721
  Serious: No
  Sender: FDA-Public Use
  Company Number: US-PFIZER INC-PV202300055026

PATIENT
  Age: 26 Year
  Sex: Male

DRUGS (1)
  1. EUCRISA [Suspect]
     Active Substance: CRISABOROLE
     Indication: Dermatitis atopic
     Dosage: TWICE DAILY AS NEEDED FOR THE FACE

REACTIONS (5)
  - Burning sensation [Unknown]
  - Erythema [Unknown]
  - Conjunctivitis [Unknown]
  - Xerosis [Unknown]
  - Condition aggravated [Unknown]
